FAERS Safety Report 9689280 (Version 1)
Quarter: 2013Q4

REPORT INFORMATION
  Report Type: Spontaneous
  Country: US (occurrence: US)
  Receive Date: 20131114
  Receipt Date: 20131114
  Transmission Date: 20140711
  Serious: Yes (Disabling)
  Sender: FDA-Public Use
  Company Number: US-009507513-1311USA005442

PATIENT
  Age: 56 Year
  Sex: Female

DRUGS (8)
  1. SINGULAIR [Suspect]
     Indication: ASTHMA
     Dosage: 10 MG, UNK
     Route: 048
  2. SINGULAIR [Suspect]
     Indication: RHINITIS ALLERGIC
     Dosage: 10 MG, UNK
     Route: 048
  3. SINGULAIR [Suspect]
     Indication: ASTHMA
     Dosage: 10 MG, UNK
     Route: 048
  4. SINGULAIR [Suspect]
     Indication: ASTHMA
     Dosage: 5 MG, UNK
     Route: 048
  5. SINGULAIR [Suspect]
     Indication: RHINITIS ALLERGIC
     Dosage: 10 MG, UNK
     Route: 048
  6. SINGULAIR [Suspect]
     Indication: RHINITIS ALLERGIC
     Dosage: 5 MG, UNK
     Route: 048
  7. SINGULAIR [Suspect]
     Indication: ASTHMA
     Dosage: 5 MG, UNK
     Route: 048
  8. SINGULAIR [Suspect]
     Indication: RHINITIS ALLERGIC
     Dosage: 5 MG, UNK
     Route: 048

REACTIONS (7)
  - Activities of daily living impaired [Unknown]
  - Arthralgia [Unknown]
  - Connective tissue disorder [Unknown]
  - Fatigue [Unknown]
  - Herpes simplex [Unknown]
  - Musculoskeletal pain [Unknown]
  - Skin burning sensation [Unknown]
